FAERS Safety Report 11276629 (Version 1)
Quarter: 2015Q3

REPORT INFORMATION
  Report Type: Spontaneous
  Country: US (occurrence: None)
  Receive Date: 20150715
  Receipt Date: 20150715
  Transmission Date: 20151125
  Serious: Yes (Other)
  Sender: FDA-Public Use
  Company Number: None

PATIENT
  Age: 69 Year
  Sex: Female
  Weight: 72.58 kg

DRUGS (7)
  1. OMEGA 3 FATTY ACIDS [Concomitant]
     Active Substance: OMEGA-3 FATTY ACIDS
  2. ZYCLARA [Suspect]
     Active Substance: IMIQUIMOD
     Indication: BASAL CELL CARCINOMA
     Dosage: 2 WKS; OFF 2 WKS; 2 WKS, ONCE DAILY, APPLIED TO A SURFACE USUALLY THE SKIN
     Dates: start: 20150601, end: 20150710
  3. STOOL SOFTENER [Concomitant]
     Active Substance: DOCUSATE CALCIUM
  4. LISINOPRIL-HCTZ [Concomitant]
     Active Substance: HYDROCHLOROTHIAZIDE\LISINOPRIL
  5. GARLIC. [Concomitant]
     Active Substance: GARLIC
  6. ZYCLARA [Suspect]
     Active Substance: IMIQUIMOD
     Indication: SOLAR DERMATITIS
     Dosage: 2 WKS; OFF 2 WKS; 2 WKS, ONCE DAILY, APPLIED TO A SURFACE USUALLY THE SKIN
     Dates: start: 20150601, end: 20150710
  7. ASA [Concomitant]
     Active Substance: ASPIRIN

REACTIONS (5)
  - Fatigue [None]
  - Lip blister [None]
  - Headache [None]
  - Nausea [None]
  - Myalgia [None]

NARRATIVE: CASE EVENT DATE: 20150710
